FAERS Safety Report 9588434 (Version 1)
Quarter: 2013Q4

REPORT INFORMATION
  Report Type: Spontaneous
  Country: US (occurrence: US)
  Receive Date: 20131003
  Receipt Date: 20131003
  Transmission Date: 20140711
  Serious: No
  Sender: FDA-Public Use
  Company Number: US-AMGEN-USASP2012064045

PATIENT
  Sex: Male
  Weight: 95.24 kg

DRUGS (10)
  1. ENBREL [Suspect]
     Indication: RHEUMATOID ARTHRITIS
     Dosage: 50 MG, QWK
     Route: 058
  2. CELEBREX [Concomitant]
     Dosage: UNK
  3. METHOTREXATE [Concomitant]
     Dosage: UNK
  4. TRICOR                             /00090101/ [Concomitant]
     Dosage: 48 MG, UNK
  5. ATENOLOL [Concomitant]
     Dosage: 50 MG, UNK
  6. ASPIRIN [Concomitant]
     Dosage: 325 MG, UNK
  7. CRESTOR [Concomitant]
     Dosage: 20 MG, UNK
  8. PLAVIX [Concomitant]
     Dosage: 75 MG, UNK
  9. FOLIC ACID [Concomitant]
     Dosage: UNK
  10. PREDNISONE [Concomitant]
     Dosage: UNK

REACTIONS (1)
  - Rheumatoid arthritis [Unknown]
